FAERS Safety Report 15951099 (Version 1)
Quarter: 2019Q1

REPORT INFORMATION
  Report Type: Spontaneous
  Country: JP (occurrence: JP)
  Receive Date: 20190211
  Receipt Date: 20190211
  Transmission Date: 20190417
  Serious: Yes (Hospitalization, Other)
  Sender: FDA-Public Use
  Company Number: JP-JNJFOC-20181208218

PATIENT
  Age: 87 Year
  Sex: Male
  Weight: 45 kg

DRUGS (4)
  1. LASIX [Concomitant]
     Active Substance: FUROSEMIDE
     Route: 048
     Dates: start: 20180712
  2. XARELTO [Suspect]
     Active Substance: RIVAROXABAN
     Indication: DEEP VEIN THROMBOSIS
     Route: 048
     Dates: start: 20181115, end: 20181203
  3. XARELTO [Suspect]
     Active Substance: RIVAROXABAN
     Indication: DEEP VEIN THROMBOSIS
     Route: 048
     Dates: start: 20181101, end: 20181114
  4. ALDACTONE A [Concomitant]
     Active Substance: SPIRONOLACTONE
     Route: 048
     Dates: start: 20181101

REACTIONS (4)
  - Haemorrhage [Recovered/Resolved]
  - Anaemia [Recovering/Resolving]
  - Small intestinal haemorrhage [Recovered/Resolved]
  - Dyspnoea exertional [Recovering/Resolving]

NARRATIVE: CASE EVENT DATE: 20181115
